FAERS Safety Report 19968740 (Version 1)
Quarter: 2021Q4

REPORT INFORMATION
  Report Type: Spontaneous
  Country: US (occurrence: US)
  Receive Date: 20211019
  Receipt Date: 20211019
  Transmission Date: 20220303
  Serious: Yes (Hospitalization)
  Sender: FDA-Public Use
  Company Number: 2021A771501

PATIENT
  Age: 687 Month
  Sex: Male
  Weight: 165.6 kg

DRUGS (2)
  1. BYDUREON BCISE [Suspect]
     Active Substance: EXENATIDE
     Indication: Type 2 diabetes mellitus
     Route: 058
     Dates: start: 202107
  2. HUMALIN R [Concomitant]
     Indication: Type 2 diabetes mellitus
     Dosage: 100 UNITS, TWO TIMES A DAY
     Route: 058

REACTIONS (1)
  - Ketoacidosis [Recovered/Resolved]

NARRATIVE: CASE EVENT DATE: 20210701
